FAERS Safety Report 25367449 (Version 1)
Quarter: 2025Q2

REPORT INFORMATION
  Report Type: Spontaneous
  Country: US (occurrence: US)
  Receive Date: 20250528
  Receipt Date: 20250528
  Transmission Date: 20250716
  Serious: No
  Sender: Unknown Manufacturer
  Company Number: US-MIRUM PHARMACEUTICALS, INC.-US-MIR-25-00174

PATIENT
  Age: 0 Year
  Sex: Male

DRUGS (2)
  1. LIVMARLI [Suspect]
     Active Substance: MARALIXIBAT CHLORIDE
     Indication: Alagille syndrome
     Dosage: 0.3 MILLILITER, QD
     Route: 065
     Dates: start: 20250322
  2. LIVMARLI [Suspect]
     Active Substance: MARALIXIBAT CHLORIDE

REACTIONS (3)
  - Vomiting [Recovered/Resolved]
  - Off label use [Unknown]
  - Product use complaint [Unknown]

NARRATIVE: CASE EVENT DATE: 20250326
